FAERS Safety Report 22006120 (Version 2)
Quarter: 2023Q1

REPORT INFORMATION
  Report Type: Spontaneous
  Country: US (occurrence: US)
  Receive Date: 20230217
  Receipt Date: 20230315
  Transmission Date: 20230418
  Serious: No
  Sender: FDA-Public Use
  Company Number: US-PFIZER INC-202300069069

PATIENT
  Age: 62 Year
  Sex: Female

DRUGS (4)
  1. IBRANCE [Suspect]
     Active Substance: PALBOCICLIB
     Dosage: 125 MG, DAILY FOR 21 CONSECUTIVE DAYS, FOLLOWED BY 7 DAYS OFF
     Route: 048
     Dates: start: 20230130
  2. ARMOUR THYROID [Concomitant]
     Active Substance: THYROID, PORCINE
  3. LETROZOLE [Concomitant]
     Active Substance: LETROZOLE
  4. TRAMADOL [Concomitant]
     Active Substance: TRAMADOL

REACTIONS (11)
  - Pain [Unknown]
  - Headache [Recovered/Resolved]
  - Fatigue [Unknown]
  - Nausea [Unknown]
  - Stress [Unknown]
  - Epistaxis [Recovered/Resolved]
  - Gastrointestinal pain [Unknown]
  - Constipation [Unknown]
  - Diarrhoea [Unknown]
  - Abdominal pain lower [Unknown]
  - Gastrointestinal inflammation [Unknown]

NARRATIVE: CASE EVENT DATE: 20230101
